FAERS Safety Report 5955616-8 (Version None)
Quarter: 2008Q4

REPORT INFORMATION
  Report Type: 
  Country: None (occurrence: None)
  Receive Date: 20081117
  Receipt Date: 20081105
  Transmission Date: 20090506
  Serious: Yes (Disabling)
  Sender: FDA-Public Use
  Company Number: GB-PFIZER INC-2008088742

PATIENT
  Sex: Female
  Weight: 90 kg

DRUGS (5)
  1. CHAMPIX [Suspect]
     Route: 048
     Dates: start: 20080320
  2. ACETYLSALICYLIC ACID SRT [Concomitant]
     Route: 048
  3. BISOPROLOL FUMARATE [Concomitant]
     Route: 048
  4. ENALAPRIL MALEATE [Concomitant]
     Route: 048
  5. LANSOPRAZOLE [Concomitant]

REACTIONS (3)
  - HOT FLUSH [None]
  - NAUSEA [None]
  - PARAESTHESIA [None]
